FAERS Safety Report 14934667 (Version 2)
Quarter: 2018Q3

REPORT INFORMATION
  Report Type: Report from Study
  Country: CO (occurrence: CO)
  Receive Date: 20180524
  Receipt Date: 20180720
  Transmission Date: 20181010
  Serious: Yes (Other)
  Sender: FDA-Public Use
  Company Number: PHHY2018CO001190

PATIENT
  Sex: Female
  Weight: 53 kg

DRUGS (4)
  1. FUROSEMIDE. [Concomitant]
     Active Substance: FUROSEMIDE
     Indication: PRODUCT USED FOR UNKNOWN INDICATION
     Route: 065
  2. ENTRESTO [Suspect]
     Active Substance: SACUBITRIL\VALSARTAN
     Indication: CARDIAC FAILURE
     Dosage: 50 MG, Q12H
     Route: 048
     Dates: start: 20180409
  3. ACETAMINOPHEN. [Concomitant]
     Active Substance: ACETAMINOPHEN
     Indication: PRODUCT USED FOR UNKNOWN INDICATION
     Route: 065
  4. SPIRONOLACTONE. [Concomitant]
     Active Substance: SPIRONOLACTONE
     Indication: PRODUCT USED FOR UNKNOWN INDICATION
     Route: 065

REACTIONS (12)
  - Oesophageal disorder [Unknown]
  - Aneurysm [Unknown]
  - Dysphagia [Unknown]
  - Insomnia [Unknown]
  - Secretion discharge [Unknown]
  - Gait inability [Unknown]
  - Dyspnoea [Unknown]
  - Abdominal pain [Unknown]
  - Asphyxia [Unknown]
  - Peripheral swelling [Unknown]
  - Ascites [Unknown]
  - Weight increased [Unknown]
